FAERS Safety Report 24962354 (Version 2)
Quarter: 2025Q1

REPORT INFORMATION
  Report Type: Spontaneous
  Country: US (occurrence: US)
  Receive Date: 20250212
  Receipt Date: 20250214
  Transmission Date: 20250408
  Serious: No
  Sender: PFIZER
  Company Number: US-PFIZER INC-PV202200118392

PATIENT
  Age: 72 Year
  Sex: Female
  Weight: 70.31 kg

DRUGS (16)
  1. IBRANCE [Suspect]
     Active Substance: PALBOCICLIB
     Indication: Breast cancer female
     Dates: start: 201908
  2. IBRANCE [Suspect]
     Active Substance: PALBOCICLIB
     Indication: Invasive ductal breast carcinoma
     Route: 048
  3. IBRANCE [Suspect]
     Active Substance: PALBOCICLIB
     Indication: Breast cancer metastatic
     Route: 048
  4. IBRANCE [Suspect]
     Active Substance: PALBOCICLIB
     Route: 048
  5. IBRANCE [Suspect]
     Active Substance: PALBOCICLIB
  6. IBRANCE [Suspect]
     Active Substance: PALBOCICLIB
     Route: 048
  7. XANAX [Concomitant]
     Active Substance: ALPRAZOLAM
     Indication: Insomnia
     Route: 048
  8. NEURONTIN [Concomitant]
     Active Substance: GABAPENTIN
     Route: 048
  9. NEURONTIN [Concomitant]
     Active Substance: GABAPENTIN
     Dosage: TAKE 300 MG, 3 TIMES DAILY
     Route: 048
  10. LETROZOLE [Concomitant]
     Active Substance: LETROZOLE
     Indication: Breast cancer
     Dosage: 2.5 MG, 1X/DAY
     Route: 048
     Dates: start: 201908
  11. HYDROCHLOROTHIAZIDE [Concomitant]
     Active Substance: HYDROCHLOROTHIAZIDE
     Indication: Hypertension
     Dosage: 25 MG, 1X/DAY
     Route: 048
  12. LEVOTHYROXINE [Concomitant]
     Active Substance: LEVOTHYROXINE
     Indication: Hypothyroidism
     Dosage: 100 UG, 1X/DAY
     Route: 048
  13. CALCIUM WITH VITAMIN D3 [CALCIUM CARBONATE;COLECALCIFEROL] [Concomitant]
     Indication: Osteoporosis
     Dosage: 1 DF, 2X/DAY
     Route: 048
  14. GABAPENTIN [Concomitant]
     Active Substance: GABAPENTIN
     Indication: Hot flush
     Dosage: 4 CAPSULES AT BEDTIME
     Route: 048
  15. TRAMADOL [Concomitant]
     Active Substance: TRAMADOL
     Indication: Arthralgia
     Route: 048
     Dates: start: 2024
  16. XGEVA [Concomitant]
     Active Substance: DENOSUMAB
     Indication: Osteoporosis
     Route: 058
     Dates: start: 202402

REACTIONS (2)
  - White blood cell count decreased [Unknown]
  - Off label use [Unknown]
